FAERS Safety Report 4524199-1 (Version None)
Quarter: 2004Q4

REPORT INFORMATION
  Report Type: 
  Country: None (occurrence: None)
  Receive Date: 20041209
  Receipt Date: 20041129
  Transmission Date: 20050328
  Serious: Yes (Disabling, Other)
  Sender: FDA-Public Use
  Company Number: 2004100571

PATIENT
  Age: 40 Year
  Sex: Female

DRUGS (1)
  1. PSEUDOEPHEDRINE HCL [Suspect]
     Dosage: 180 MG ONCE, ORAL
     Route: 048

REACTIONS (3)
  - CEREBRAL HAEMORRHAGE [None]
  - CEREBROVASCULAR ACCIDENT [None]
  - VASCULAR RUPTURE [None]
